FAERS Safety Report 24445157 (Version 3)
Quarter: 2024Q4

REPORT INFORMATION
  Report Type: Report from Study
  Country: CA (occurrence: CA)
  Receive Date: 20241016
  Receipt Date: 20241218
  Transmission Date: 20250114
  Serious: Yes (Hospitalization, Other)
  Sender: JOHNSON AND JOHNSON
  Company Number: CA-JNJFOC-20241026156

PATIENT
  Age: 59 Year
  Sex: Male

DRUGS (2)
  1. REMICADE [Suspect]
     Active Substance: INFLIXIMAB
     Indication: Sarcoidosis
     Route: 041
     Dates: start: 20230203
  2. REMICADE [Suspect]
     Active Substance: INFLIXIMAB
     Route: 041
     Dates: start: 20230203

REACTIONS (5)
  - Cerebrovascular accident [Unknown]
  - Dialysis related complication [Unknown]
  - Herpes simplex [Not Recovered/Not Resolved]
  - Product dose omission issue [Unknown]
  - Malaise [Unknown]

NARRATIVE: CASE EVENT DATE: 20240101
